FAERS Safety Report 13505770 (Version 1)
Quarter: 2017Q2

REPORT INFORMATION
  Report Type: Spontaneous
  Country: US (occurrence: US)
  Receive Date: 20170502
  Receipt Date: 20170502
  Transmission Date: 20170830
  Serious: No
  Sender: FDA-Public Use
  Company Number: US-ASTRAZENECA-2016SE27476

PATIENT
  Age: 463 Month
  Sex: Female
  Weight: 147.4 kg

DRUGS (6)
  1. BYDUREON [Suspect]
     Active Substance: EXENATIDE
     Indication: DIABETES MELLITUS
     Route: 058
  2. VITAMIN C [Concomitant]
     Active Substance: ASCORBIC ACID
  3. AMYTRIPTALLINE [Concomitant]
     Indication: MIGRAINE
     Dosage: DAILY
  4. LEVAMIR [Concomitant]
     Indication: DIABETES MELLITUS
  5. DEPAKOATE [Concomitant]
     Dosage: TWO TIMES A DAY
  6. BABY ASPIRIN [Concomitant]
     Active Substance: ASPIRIN
     Dosage: DAILY

REACTIONS (1)
  - Injection site haemorrhage [Unknown]

NARRATIVE: CASE EVENT DATE: 201512
